FAERS Safety Report 5607757-2 (Version None)
Quarter: 2008Q1

REPORT INFORMATION
  Report Type: 
  Country: None (occurrence: None)
  Receive Date: 20080125
  Receipt Date: 20080122
  Transmission Date: 20080703
  Serious: Yes (Life-Threatening)
  Sender: FDA-Public Use
  Company Number: 2008-170337-NL

PATIENT
  Age: 30 Year
  Sex: Female

DRUGS (2)
  1. EIONOGESIREL [Suspect]
     Indication: CONTRACEPTION
     Dosage: DF, SUBCUTANEOUS
     Route: 058
     Dates: start: 20070914, end: 20080112
  2. CIPROFLOXACIN HYDROCHLORIDE [Concomitant]

REACTIONS (8)
  - ANOREXIA [None]
  - ANXIETY [None]
  - DEPRESSION [None]
  - EATING DISORDER [None]
  - MENTAL DISORDER [None]
  - NERVOUSNESS [None]
  - SUICIDE ATTEMPT [None]
  - WEIGHT DECREASED [None]
